FAERS Safety Report 13924196 (Version 1)
Quarter: 2017Q3

REPORT INFORMATION
  Report Type: Spontaneous
  Country: US (occurrence: US)
  Receive Date: 20170831
  Receipt Date: 20170831
  Transmission Date: 20171127
  Serious: Yes (Life-Threatening, Other)
  Sender: FDA-Public Use
  Company Number: US-JNJFOC-20170822995

PATIENT

DRUGS (4)
  1. LOPERAMIDE HYDROCHLORIDE. [Suspect]
     Active Substance: LOPERAMIDE HYDROCHLORIDE
     Indication: WITHDRAWAL SYNDROME
     Route: 048
  2. LOPERAMIDE HYDROCHLORIDE. [Suspect]
     Active Substance: LOPERAMIDE HYDROCHLORIDE
     Indication: SUICIDE ATTEMPT
     Route: 048
  3. LOPERAMIDE HYDROCHLORIDE. [Suspect]
     Active Substance: LOPERAMIDE HYDROCHLORIDE
     Indication: DRUG USE DISORDER
     Route: 048
  4. LOPERAMIDE HYDROCHLORIDE. [Suspect]
     Active Substance: LOPERAMIDE HYDROCHLORIDE
     Indication: INTENTIONAL PRODUCT MISUSE
     Route: 048

REACTIONS (24)
  - Hypertension [Unknown]
  - Hypotension [Unknown]
  - Respiratory depression [Unknown]
  - Irritability [Unknown]
  - Ventricular fibrillation [Unknown]
  - Coma [Unknown]
  - Dyspnoea [Unknown]
  - Tachycardia [Unknown]
  - Lethargy [Unknown]
  - Somnolence [Unknown]
  - Respiratory arrest [Unknown]
  - Suicide attempt [Unknown]
  - Overdose [Unknown]
  - Electrocardiogram change [Unknown]
  - Confusional state [Unknown]
  - Cardiac arrest [Unknown]
  - Seizure [Unknown]
  - Intentional product misuse [Unknown]
  - Conduction disorder [Unknown]
  - Ventricular tachycardia [Unknown]
  - Tachypnoea [Unknown]
  - Agitation [Unknown]
  - Bradycardia [Unknown]
  - Drug abuse [Unknown]
